FAERS Safety Report 11893354 (Version 3)
Quarter: 2016Q1

REPORT INFORMATION
  Report Type: Report from Study
  Country: DE (occurrence: DE)
  Receive Date: 20160106
  Receipt Date: 20160224
  Transmission Date: 20160526
  Serious: Yes (Death, Hospitalization)
  Sender: FDA-Public Use
  Company Number: DE-BAYER-2016-000661

PATIENT
  Age: 69 Year
  Sex: Male

DRUGS (11)
  1. NOVAMINSULFON [Concomitant]
     Active Substance: METAMIZOLE
     Dosage: DAILY DOSE 1500MG
     Dates: start: 20151112, end: 20151204
  2. VERAPAMIL [Concomitant]
     Active Substance: VERAPAMIL HYDROCHLORIDE
     Dosage: DAILY DOSE 240 MG
     Dates: start: 20151204, end: 20160110
  3. MORPHINE [Concomitant]
     Active Substance: MORPHINE
     Dosage: DAILY DOSE 20MG
     Dates: start: 20151112, end: 20151204
  4. STIVARGA [Suspect]
     Active Substance: REGORAFENIB
     Indication: COLORECTAL CANCER METASTATIC
     Dosage: DAILY DOSE 120
     Route: 048
     Dates: start: 20151029
  5. MCP [Concomitant]
     Active Substance: METOCLOPRAMIDE HYDROCHLORIDE
     Indication: PROPHYLAXIS
     Dosage: DAILY DOSE 90 DROPS
     Dates: start: 20151112, end: 20151204
  6. STIVARGA [Suspect]
     Active Substance: REGORAFENIB
     Indication: COLORECTAL CANCER METASTATIC
     Dosage: UNK
     Route: 048
     Dates: start: 20151229, end: 20160111
  7. RAMIPRIL [RAMIPRIL] [Concomitant]
     Dosage: DAILY DOSE 5 MG
     Dates: start: 20151204, end: 20160110
  8. METFORMIN [Concomitant]
     Active Substance: METFORMIN HYDROCHLORIDE
     Dosage: DAILY DOSE 850 MG
     Dates: start: 20151204, end: 20160110
  9. PANTOPRAZOLE [Concomitant]
     Active Substance: PANTOPRAZOLE SODIUM
     Indication: GASTRIC DISORDER
     Dosage: DAILY DOSE 20 MG
     Dates: start: 20151204, end: 20160110
  10. ATORVASTATIN [Concomitant]
     Active Substance: ATORVASTATIN
     Dosage: DAILY DOSE 20 MG
     Dates: start: 20151204, end: 20160110
  11. APIXABAN [Concomitant]
     Active Substance: APIXABAN
     Dosage: DAILY DOSE 10 MG
     Dates: start: 20151204, end: 20160110

REACTIONS (2)
  - Tachycardia paroxysmal [Recovered/Resolved]
  - Metastatic renal cell carcinoma [Fatal]

NARRATIVE: CASE EVENT DATE: 20151204
